FAERS Safety Report 9866727 (Version 1)
Quarter: 2014Q1

REPORT INFORMATION
  Report Type: Spontaneous
  Country: US (occurrence: US)
  Receive Date: 20140204
  Receipt Date: 20140204
  Transmission Date: 20141002
  Serious: No
  Sender: FDA-Public Use
  Company Number: US-BIOGENIDEC-2014BI008987

PATIENT
  Sex: Male

DRUGS (21)
  1. TECFIDERA [Suspect]
     Indication: MULTIPLE SCLEROSIS
     Route: 048
     Dates: start: 20140110
  2. ACETAMINOPHEN [Concomitant]
  3. ARTIFICIAL TEARS [Concomitant]
  4. ATENOLOL [Concomitant]
  5. ATORVASTATIN CALCIUM [Concomitant]
  6. BACLOFEN [Concomitant]
  7. BISACODYL LAXATIVE [Concomitant]
  8. CALCIUM + D3 [Concomitant]
  9. DOCUSATE SODIUM [Concomitant]
  10. DOXYCYCLINE HYCLATE [Concomitant]
  11. DULOXETINE HCL [Concomitant]
  12. FLUNISOLIDE [Concomitant]
  13. FUROSEMIDE [Concomitant]
  14. GABAPENTIN [Concomitant]
  15. HYDROXYZINE HCL [Concomitant]
  16. LORAZEPAM [Concomitant]
  17. METFORMIN HCL [Concomitant]
  18. MICONAZOLE NITRATE [Concomitant]
  19. OXYCODONE HCL [Concomitant]
  20. WARFARIN SODIUM [Concomitant]
  21. ZOLPIDEM TARTRATE ER [Concomitant]

REACTIONS (5)
  - Pyrexia [Unknown]
  - Muscle spasms [Unknown]
  - Depressed level of consciousness [Unknown]
  - Nausea [Unknown]
  - Vomiting [Unknown]
